FAERS Safety Report 6898337-X (Version None)
Quarter: 2010Q3

REPORT INFORMATION
  Report Type: 
  Country: None (occurrence: None)
  Receive Date: 20100802
  Receipt Date: 20071001
  Transmission Date: 20110219
  Serious: No
  Sender: FDA-Public Use
  Company Number: US-PFIZER INC-2007083596

PATIENT
  Sex: Male

DRUGS (3)
  1. LYRICA [Suspect]
  2. CYMBALTA [Suspect]
  3. TRILEPTAL [Suspect]

REACTIONS (3)
  - ASTHENIA [None]
  - MALAISE [None]
  - NAUSEA [None]
